FAERS Safety Report 18037650 (Version 2)
Quarter: 2020Q3

REPORT INFORMATION
  Report Type: Spontaneous
  Country: US (occurrence: US)
  Receive Date: 20200717
  Receipt Date: 20200806
  Transmission Date: 20201103
  Serious: No
  Sender: FDA-Public Use
  Company Number: US-SA-2020SA183762

PATIENT

DRUGS (1)
  1. DUPIXENT [Suspect]
     Active Substance: DUPILUMAB
     Indication: DERMATITIS ATOPIC
     Dosage: 300 MG, QOW
     Route: 058
     Dates: start: 20200701

REACTIONS (6)
  - Eyelids pruritus [Unknown]
  - Skin exfoliation [Unknown]
  - Skin discolouration [Unknown]
  - Erythema of eyelid [Unknown]
  - Dry skin [Unknown]
  - Eye irritation [Unknown]

NARRATIVE: CASE EVENT DATE: 202007
